FAERS Safety Report 14039554 (Version 2)
Quarter: 2017Q4

REPORT INFORMATION
  Report Type: Spontaneous
  Country: US (occurrence: US)
  Receive Date: 20171004
  Receipt Date: 20171115
  Transmission Date: 20180321
  Serious: Yes (Hospitalization, Other)
  Sender: FDA-Public Use
  Company Number: US-GLAXOSMITHKLINE-US2017GSK152135

PATIENT
  Age: 12 Year
  Sex: Male

DRUGS (3)
  1. VENTOLIN HFA [Suspect]
     Active Substance: ALBUTEROL SULFATE
     Indication: ASTHMA
     Dosage: 2 PUFF(S), UNK
     Dates: start: 2010
  2. VENTOLIN HFA [Suspect]
     Active Substance: ALBUTEROL SULFATE
     Indication: ASTHMA EXERCISE INDUCED
  3. SINGULAIR [Concomitant]
     Active Substance: MONTELUKAST SODIUM

REACTIONS (8)
  - Oxygen saturation decreased [Recovered/Resolved]
  - Exposure to allergen [Recovered/Resolved]
  - Product quality issue [Unknown]
  - Foreign body aspiration [Recovered/Resolved]
  - Cough [Recovered/Resolved]
  - Concussion [Recovering/Resolving]
  - Dyspnoea [Unknown]
  - Passive smoking [Recovered/Resolved]

NARRATIVE: CASE EVENT DATE: 201708
